FAERS Safety Report 9663563 (Version 3)
Quarter: 2014Q2

REPORT INFORMATION
  Report Type: Spontaneous
  Country: US (occurrence: US)
  Receive Date: 20131101
  Receipt Date: 20140529
  Transmission Date: 20141212
  Serious: No
  Sender: FDA-Public Use
  Company Number: US-PFIZER INC-2013310161

PATIENT
  Age: 72 Year
  Sex: Female

DRUGS (1)
  1. XALKORI [Suspect]
     Indication: NON-SMALL CELL LUNG CANCER
     Dosage: 250 MG, 2X/DAY (BID) (1 CAPSULE TWICE DAILY)
     Dates: start: 20131024

REACTIONS (3)
  - Dyspepsia [Unknown]
  - Sciatica [Unknown]
  - Hypoaesthesia [Unknown]
